FAERS Safety Report 9565681 (Version 2)
Quarter: 2013Q4

REPORT INFORMATION
  Report Type: Spontaneous
  Country: CH (occurrence: CH)
  Receive Date: 20130930
  Receipt Date: 20131010
  Transmission Date: 20140711
  Serious: Yes (Other)
  Sender: FDA-Public Use
  Company Number: CH-BAYER-2013-117798

PATIENT
  Sex: Female
  Weight: 62 kg

DRUGS (4)
  1. MIRENA [Suspect]
     Indication: CONTRACEPTION
     Dosage: UNK
     Route: 015
     Dates: start: 2003, end: 201309
  2. MIRENA [Suspect]
     Indication: CONTRACEPTION
     Dosage: UNK
     Route: 015
     Dates: start: 20130813, end: 20130924
  3. ELTROXIN [Concomitant]
  4. SYMBICORT [Concomitant]
     Dosage: UNK UNK, PRN

REACTIONS (3)
  - Squamous cell carcinoma of the cervix [Recovered/Resolved]
  - Smear cervix abnormal [Recovered/Resolved]
  - Device misuse [None]
